FAERS Safety Report 9914110 (Version 1)
Quarter: 2014Q1

REPORT INFORMATION
  Report Type: Spontaneous
  Country: US (occurrence: None)
  Receive Date: 20140219
  Receipt Date: 20140219
  Transmission Date: 20141002
  Serious: Yes (Other)
  Sender: FDA-Public Use
  Company Number: None

PATIENT
  Age: 57 Year
  Sex: Female
  Weight: 78.02 kg

DRUGS (2)
  1. TROSPIUM CL [Suspect]
     Indication: BLADDER DISORDER
     Route: 048
  2. TROSPIUM CL [Suspect]
     Indication: BURNING SENSATION
     Route: 048

REACTIONS (2)
  - Burning sensation [None]
  - Pain [None]
